FAERS Safety Report 6751587-5 (Version None)
Quarter: 2010Q2

REPORT INFORMATION
  Report Type: 
  Country: None (occurrence: None)
  Receive Date: 20100602
  Receipt Date: 20100522
  Transmission Date: 20101027
  Serious: Yes (Hospitalization)
  Sender: FDA-Public Use
  Company Number: JP-ROCHE-706179

PATIENT
  Sex: Female

DRUGS (9)
  1. ACTEMRA [Suspect]
     Indication: RHEUMATOID ARTHRITIS
     Route: 041
     Dates: start: 20081004, end: 20081004
  2. ACTEMRA [Suspect]
     Route: 041
     Dates: start: 20081101, end: 20081101
  3. ACTEMRA [Suspect]
     Route: 041
     Dates: start: 20081213, end: 20081213
  4. ACTEMRA [Suspect]
     Route: 041
     Dates: start: 20090110, end: 20090110
  5. ACTEMRA [Suspect]
     Route: 041
     Dates: start: 20090214, end: 20090214
  6. ACTEMRA [Suspect]
     Route: 041
     Dates: start: 20090314
  7. SELBEX [Concomitant]
     Dosage: FORM: PERORAL AGENT.
     Route: 048
  8. JUVELA N [Concomitant]
     Route: 048
  9. BIOFERMIN [Concomitant]
     Route: 048

REACTIONS (1)
  - ARTHRITIS [None]
